FAERS Safety Report 16725961 (Version 1)
Quarter: 2019Q3

REPORT INFORMATION
  Report Type: Spontaneous
  Country: US (occurrence: US)
  Receive Date: 20190705
  Receipt Date: 20190705
  Transmission Date: 20191005
  Serious: No
  Sender: FDA-Public Use
  Company Number: None

PATIENT
  Age: 71 Year
  Sex: Female

DRUGS (1)
  1. _MYCOPHENOLAT MOF CAP 250MG [Suspect]
     Active Substance: MYCOPHENOLATE MOFETIL
     Dosage: ?          OTHER FREQUENCY:OTHER;?
     Dates: start: 20190404

REACTIONS (5)
  - Product dispensing error [None]
  - Product substitution issue [None]
  - Drug tolerance [None]
  - Blood pressure increased [None]
  - Peripheral swelling [None]

NARRATIVE: CASE EVENT DATE: 20190705
